FAERS Safety Report 17229686 (Version 2)
Quarter: 2021Q4

REPORT INFORMATION
  Report Type: Spontaneous
  Country: FR (occurrence: FR)
  Receive Date: 20200103
  Receipt Date: 20211129
  Transmission Date: 20220303
  Serious: Yes (Life-Threatening, Hospitalization)
  Sender: FDA-Public Use
  Company Number: FR-VIGILIT-212105

PATIENT
  Age: 33 Year
  Sex: Male

DRUGS (4)
  1. TRAMADOL [Interacting]
     Active Substance: TRAMADOL
     Indication: Product used for unknown indication
     Dosage: 10 GRAM, QD (MAXIMAL INGESTION: 10G)
     Route: 048
  2. HYDROXYZINE [Interacting]
     Active Substance: HYDROXYZINE HYDROCHLORIDE
     Indication: Product used for unknown indication
     Dosage: 6 G, QD (MAXIMAL INGESTION: 6G)
     Route: 048
  3. GABAPENTIN [Interacting]
     Active Substance: GABAPENTIN
     Indication: Product used for unknown indication
     Dosage: 1 G, QD (MAXIMAL INGESTION: 1G)
     Route: 048
  4. CLONAZEPAM [Interacting]
     Active Substance: CLONAZEPAM
     Indication: Product used for unknown indication
     Dosage: 80 MG, QD (MAXIMAL INGESTION: 80MG)
     Route: 048

REACTIONS (28)
  - Mydriasis [Recovered/Resolved]
  - Pupillary reflex impaired [Recovered/Resolved]
  - Hypothermia [Recovering/Resolving]
  - Bundle branch block right [Recovering/Resolving]
  - Blood bicarbonate decreased [Recovered/Resolved]
  - Blood lactic acid increased [Recovered/Resolved]
  - Blood creatinine increased [Recovered/Resolved]
  - Myoglobin blood increased [Recovered/Resolved]
  - Blood creatine phosphokinase increased [Recovered/Resolved]
  - Cardiac arrest [Recovering/Resolving]
  - Cardiac failure [Recovering/Resolving]
  - Electrocardiogram QT prolonged [Recovering/Resolving]
  - Loss of consciousness [Recovering/Resolving]
  - Depressed level of consciousness [Recovered/Resolved with Sequelae]
  - Cerebral disorder [Unknown]
  - Ventricular tachycardia [Recovered/Resolved]
  - Shock [Recovered/Resolved]
  - Hypoglycaemia [Recovered/Resolved]
  - Hypotension [Recovered/Resolved]
  - Acute kidney injury [Recovered/Resolved]
  - Seizure [Recovered/Resolved]
  - Coma [Recovered/Resolved]
  - Drug interaction [Recovered/Resolved with Sequelae]
  - Accidental overdose [Recovered/Resolved]
  - Intentional overdose [Recovered/Resolved with Sequelae]
  - Overdose [Recovered/Resolved]
  - Lung disorder [Recovered/Resolved]
  - Serotonin syndrome [Recovering/Resolving]
